FAERS Safety Report 8511823-1 (Version None)
Quarter: 2012Q3

REPORT INFORMATION
  Report Type: 
  Country: None (occurrence: None)
  Receive Date: 20120716
  Receipt Date: 20120712
  Transmission Date: 20120928
  Serious: Yes (Hospitalization)
  Sender: FDA-Public Use
  Company Number: PHFR2012GB003975

PATIENT
  Sex: Male

DRUGS (2)
  1. CLOZARIL [Suspect]
     Indication: SCHIZOPHRENIA
     Route: 048
     Dates: start: 20100830
  2. LITHIUM CARBONATE [Concomitant]
     Dosage: UNK UKN, UNK

REACTIONS (2)
  - SKIN CANCER [None]
  - PLATELET COUNT INCREASED [None]
